FAERS Safety Report 6538960-5 (Version None)
Quarter: 2010Q1

REPORT INFORMATION
  Report Type: 
  Country: None (occurrence: None)
  Receive Date: 20100115
  Receipt Date: 20100111
  Transmission Date: 20100710
  Serious: Yes (Hospitalization)
  Sender: FDA-Public Use
  Company Number: JP-TEVA-220562ISR

PATIENT
  Age: 64 Year
  Sex: Female

DRUGS (2)
  1. CISPLATIN [Interacting]
     Indication: HEPATIC NEOPLASM MALIGNANT
  2. FLUOROURACIL [Suspect]
     Indication: HEPATIC NEOPLASM MALIGNANT

REACTIONS (1)
  - CHOLANGITIS SCLEROSING [None]
